FAERS Safety Report 8584983-4 (Version None)
Quarter: 2012Q3

REPORT INFORMATION
  Report Type: 
  Country: None (occurrence: None)
  Receive Date: 20120810
  Receipt Date: 20120806
  Transmission Date: 20120928
  Serious: Yes (Other)
  Sender: FDA-Public Use
  Company Number: US-PFIZER INC-2012191039

PATIENT
  Age: 47 Year
  Sex: Female
  Weight: 65.76 kg

DRUGS (2)
  1. PRISTIQ [Suspect]
     Dosage: 50MG INTO FOUR PARTS AND TAKING A QUARTER PART, 1X/DAY
     Route: 048
     Dates: end: 20120713
  2. PRISTIQ [Suspect]
     Indication: ANXIETY
     Dosage: 50 MG, 1X/DAY
     Route: 048

REACTIONS (6)
  - WITHDRAWAL SYNDROME [None]
  - HALLUCINATION [None]
  - HEADACHE [None]
  - DIZZINESS [None]
  - DYSSTASIA [None]
  - DEPRESSION [None]
